FAERS Safety Report 8302624-8 (Version None)
Quarter: 2012Q1

REPORT INFORMATION
  Report Type: 
  Country: None (occurrence: None)
  Receive Date: 20120326
  Receipt Date: 20110815
  Transmission Date: 20120608
  Serious: Yes (Life-Threatening, Hospitalization)
  Sender: FDA-Public Use
  Company Number: PHEH2011US01494

PATIENT
  Age: 54 Year
  Sex: Male

DRUGS (3)
  1. MULTIVITAMINS (ASCORBIC ACID, ERGOCLACIFEROL, FOLIC AICD, NOCOTINAMIDE [Concomitant]
  2. TASIGNA [Suspect]
     Dosage: 400 MG, BID, ORAL
     Route: 048
     Dates: start: 20110805, end: 20110811
  3. PEPCID [Concomitant]

REACTIONS (1)
  - PANCREATITIS [None]
